FAERS Safety Report 6244033-1 (Version None)
Quarter: 2009Q2

REPORT INFORMATION
  Report Type: 
  Country: None (occurrence: None)
  Receive Date: 20090625
  Receipt Date: 20070523
  Transmission Date: 20091009
  Serious: Yes (Other)
  Sender: FDA-Public Use
  Company Number: US-ASTRAZENECA-2006UW22359

PATIENT
  Age: 48 Year
  Sex: Female
  Weight: 82.5 kg

DRUGS (21)
  1. SEROQUEL [Suspect]
     Indication: DEPRESSION
     Route: 048
     Dates: start: 19980101
  2. SEROQUEL [Suspect]
     Indication: INSOMNIA
     Route: 048
     Dates: start: 19980101
  3. SEROQUEL [Suspect]
     Dosage: 25-125 MG
     Route: 048
     Dates: start: 20000417, end: 20040320
  4. SEROQUEL [Suspect]
     Dosage: 25-125 MG
     Route: 048
     Dates: start: 20000417, end: 20040320
  5. RISPERIDONE [Concomitant]
     Dosage: HALF TABLET AT HS
     Dates: start: 20000417
  6. ASPIRIN [Concomitant]
     Route: 048
     Dates: start: 20001106
  7. CYCLOBENZAPRINE [Concomitant]
     Indication: MUSCLE SPASMS
     Route: 048
     Dates: start: 20001106
  8. ESTROGENS CONJUGATED [Concomitant]
     Dosage: 1.25 - 0.45 MG
     Route: 048
     Dates: start: 20001106
  9. PROPRANOLOL HYDROCHLORIDE [Concomitant]
     Route: 048
     Dates: start: 20001109
  10. PROZAC [Concomitant]
     Route: 048
     Dates: start: 20030926
  11. SERTRALINE [Concomitant]
     Dosage: TWO TABLETS EVERY DAY
     Route: 048
     Dates: start: 20030926
  12. SIMVASTATIN [Concomitant]
     Indication: BLOOD CHOLESTEROL
     Dosage: 10-40 MG, DISPENSED
     Route: 048
     Dates: start: 20030926
  13. GABAPENTIN [Concomitant]
     Route: 048
     Dates: start: 20030926
  14. BUPROPION [Concomitant]
     Indication: DEPRESSION
     Route: 048
     Dates: start: 20050512
  15. BUPROPION [Concomitant]
     Indication: ANXIETY
     Route: 048
     Dates: start: 20050512
  16. CLONAZEPAM [Concomitant]
     Indication: ANXIETY
     Dosage: 0.5 MG QHS PRN
     Route: 048
     Dates: start: 20001106
  17. CLONAZEPAM [Concomitant]
     Indication: INSOMNIA
     Dosage: 0.5 MG QHS PRN
     Route: 048
     Dates: start: 20001106
  18. MOBAN [Concomitant]
     Dosage: HALF TABLET OF 10 MG HS
  19. EFFEXOR [Concomitant]
  20. CELEXA [Concomitant]
     Dosage: 2 TABLETS QHS
     Dates: start: 20000417
  21. SYNTHROID [Concomitant]

REACTIONS (4)
  - DIABETES MELLITUS [None]
  - DIABETIC FOOT [None]
  - DIABETIC NEUROPATHY [None]
  - TYPE 1 DIABETES MELLITUS [None]
